FAERS Safety Report 6381734-9 (Version None)
Quarter: 2009Q3

REPORT INFORMATION
  Report Type: 
  Country: None (occurrence: None)
  Receive Date: 20090930
  Receipt Date: 20090922
  Transmission Date: 20100115
  Serious: Yes (Other)
  Sender: FDA-Public Use
  Company Number: PHHY2008BR23197

PATIENT
  Age: 35 Year
  Sex: Male
  Weight: 97 kg

DRUGS (1)
  1. TOFRANIL [Suspect]
     Indication: DEPRESSION
     Dosage: 25 MG, 8QD
     Dates: start: 20090627

REACTIONS (11)
  - ANXIETY [None]
  - COORDINATION ABNORMAL [None]
  - DIZZINESS [None]
  - HYPOKINESIA [None]
  - IRRITABILITY [None]
  - MOVEMENT DISORDER [None]
  - PAIN [None]
  - SELF INJURIOUS BEHAVIOUR [None]
  - SLEEP DISORDER [None]
  - VERTIGO [None]
  - VISION BLURRED [None]
